FAERS Safety Report 19627860 (Version 1)
Quarter: 2021Q3

REPORT INFORMATION
  Report Type: Spontaneous
  Country: IT (occurrence: IT)
  Receive Date: 20210728
  Receipt Date: 20210728
  Transmission Date: 20211014
  Serious: Yes (Other)
  Sender: FDA-Public Use
  Company Number: IT-PFIZER INC-202100925247

PATIENT
  Age: 19 Year
  Sex: Male

DRUGS (5)
  1. METHYLPREDNISOLONE SODIUM SUCCINATE. [Suspect]
     Active Substance: METHYLPREDNISOLONE SODIUM SUCCINATE
     Dosage: 32 MG, PER OS
     Route: 048
     Dates: start: 201610, end: 201708
  2. LISINOPRIL. [Suspect]
     Active Substance: LISINOPRIL
     Indication: GLOMERULONEPHRITIS MEMBRANOPROLIFERATIVE
  3. METHYLPREDNISOLONE SODIUM SUCCINATE. [Suspect]
     Active Substance: METHYLPREDNISOLONE SODIUM SUCCINATE
     Indication: SELECTIVE IGA IMMUNODEFICIENCY
     Dosage: 60 MG, 1 WEEK
     Route: 042
     Dates: start: 201312, end: 201402
  4. METHYLPREDNISOLONE SODIUM SUCCINATE. [Suspect]
     Active Substance: METHYLPREDNISOLONE SODIUM SUCCINATE
     Indication: GLOMERULONEPHRITIS MEMBRANOPROLIFERATIVE
     Dosage: 64 MG, PER OS
     Route: 048
     Dates: end: 201402
  5. LISINOPRIL. [Suspect]
     Active Substance: LISINOPRIL
     Indication: SELECTIVE IGA IMMUNODEFICIENCY
     Dosage: 20 MG, 1X/DAY
     Dates: start: 201312, end: 201402

REACTIONS (2)
  - Glomerulonephritis membranoproliferative [Unknown]
  - Therapeutic product effect incomplete [Unknown]

NARRATIVE: CASE EVENT DATE: 201406
